FAERS Safety Report 5087191-7 (Version None)
Quarter: 2006Q3

REPORT INFORMATION
  Report Type: 
  Country: None (occurrence: None)
  Receive Date: 20060821
  Receipt Date: 20060808
  Transmission Date: 20061208
  Serious: Yes (Life-Threatening, Hospitalization)
  Sender: FDA-Public Use
  Company Number: 2006-01623

PATIENT
  Age: 64 Year
  Sex: Female
  Weight: 82 kg

DRUGS (6)
  1. VELCADE [Suspect]
     Indication: LEUKAEMIA PLASMACYTIC
     Dosage: 2.00 MG, INTRAVENOUS
     Route: 042
     Dates: start: 20060509, end: 20060519
  2. VERGENTAN (ALIZAPRIDE HYDROCHLORIDE) [Concomitant]
  3. RAMIPRIL [Concomitant]
  4. ALLOPURINOL [Concomitant]
  5. DURAGESIC-100 [Concomitant]
  6. CELEBREX [Concomitant]

REACTIONS (3)
  - DIALYSIS [None]
  - HYPERKALAEMIA [None]
  - RENAL FAILURE ACUTE [None]
